FAERS Safety Report 9252753 (Version 1)
Quarter: 2013Q2

REPORT INFORMATION
  Report Type: Spontaneous
  Country: US (occurrence: US)
  Receive Date: 20130424
  Receipt Date: 20130424
  Transmission Date: 20140414
  Serious: No
  Sender: FDA-Public Use
  Company Number: US-009507513-1304USA007408

PATIENT
  Sex: Male

DRUGS (1)
  1. CLARITIN [Suspect]
     Indication: LOWER RESPIRATORY TRACT INFECTION
     Dosage: 10 MG, ONCE
     Route: 048

REACTIONS (2)
  - Haemoptysis [Recovered/Resolved]
  - Nasal dryness [Recovered/Resolved]
